FAERS Safety Report 7577161-9 (Version None)
Quarter: 2011Q2

REPORT INFORMATION
  Report Type: 
  Country: None (occurrence: None)
  Receive Date: 20110628
  Receipt Date: 20110524
  Transmission Date: 20111010
  Serious: Yes (Other)
  Sender: FDA-Public Use
  Company Number: US-BAYER-201039602NA

PATIENT
  Age: 24 Year
  Sex: Female
  Weight: 63.492 kg

DRUGS (2)
  1. YASMIN [Suspect]
     Dosage: UNK
  2. YASMIN [Suspect]
     Indication: ACNE
     Dosage: UNK
     Route: 048
     Dates: start: 20070401

REACTIONS (1)
  - DEEP VEIN THROMBOSIS [None]
